FAERS Safety Report 17035655 (Version 1)
Quarter: 2019Q4

REPORT INFORMATION
  Report Type: Spontaneous
  Country: CA (occurrence: CA)
  Receive Date: 20191115
  Receipt Date: 20191115
  Transmission Date: 20200122
  Serious: Yes (Hospitalization, Other)
  Sender: FDA-Public Use
  Company Number: CA-SCIEGEN PHARMACEUTICALS INC-2019SCILIT00353

PATIENT
  Age: 20 Year
  Sex: Male
  Weight: 65 kg

DRUGS (3)
  1. CARBAMAZEPINE. [Suspect]
     Active Substance: CARBAMAZEPINE
  2. LAMOTRIGINE TABLETS [Suspect]
     Active Substance: LAMOTRIGINE
  3. NEOSTIGMINE AND GLYCOPYRROLATE [Suspect]
     Active Substance: GLYCOPYRROLATE\NEOSTIGMINE

REACTIONS (1)
  - Atrioventricular block second degree [Recovering/Resolving]
